FAERS Safety Report 9438154 (Version 1)
Quarter: 2013Q3

REPORT INFORMATION
  Report Type: Spontaneous
  Country: US (occurrence: US)
  Receive Date: 20130802
  Receipt Date: 20130802
  Transmission Date: 20140515
  Serious: Yes (Other)
  Sender: FDA-Public Use
  Company Number: US-BRISTOL-MYERS SQUIBB COMPANY-16936148

PATIENT
  Age: 52 Year
  Sex: Female
  Weight: 80 kg

DRUGS (4)
  1. COUMADIN [Suspect]
  2. TREPROSTINIL [Suspect]
     Indication: PULMONARY HYPERTENSION
     Dosage: TOTAL DAILY DOSE:216 MCG?6MCG AEROSOL FOR INHALATION
     Route: 055
     Dates: start: 20091023
  3. TRACLEER [Concomitant]
  4. REVATIO [Concomitant]

REACTIONS (2)
  - Cerebral haemorrhage [Not Recovered/Not Resolved]
  - Headache [Not Recovered/Not Resolved]
